FAERS Safety Report 6467474-6 (Version None)
Quarter: 2009Q4

REPORT INFORMATION
  Report Type: 
  Country: None (occurrence: None)
  Receive Date: 20091127
  Receipt Date: 20091116
  Transmission Date: 20100525
  Serious: Yes (Other)
  Sender: FDA-Public Use
  Company Number: ADR51212009

PATIENT
  Sex: Female

DRUGS (5)
  1. ARROW-SIMVA 40MG (MAH: ARROW PHARMACEUTICALS (NZ) LTD.) [Suspect]
     Indication: BLOOD CHOLESTEROL INCREASED
     Dosage: 40 MG ORAL
     Route: 048
     Dates: start: 20091109, end: 20091115
  2. NORFLOXACIN [Concomitant]
  3. NITROFURANTOIN [Concomitant]
  4. CILAZAPRIL [Concomitant]
  5. DOXAZOSIN [Concomitant]

REACTIONS (8)
  - ARTHRALGIA [None]
  - FEELING COLD [None]
  - JOINT SWELLING [None]
  - PRURITUS [None]
  - PYREXIA [None]
  - RASH [None]
  - TREMOR [None]
  - URINE OUTPUT INCREASED [None]
